FAERS Safety Report 9670335 (Version 1)
Quarter: 2013Q4

REPORT INFORMATION
  Report Type: Spontaneous
  Country: FR (occurrence: None)
  Receive Date: 20131104
  Receipt Date: 20131104
  Transmission Date: 20140711
  Serious: Yes (Death, Life-Threatening)
  Sender: FDA-Public Use
  Company Number: 1930437

PATIENT
  Age: 36 Year
  Sex: Male

DRUGS (17)
  1. CARBOPLATIN [Suspect]
     Indication: PRODUCT USED FOR UNKNOWN INDICATION
     Dates: end: 20110304
  2. ENDOXAN [Suspect]
     Indication: PRODUCT USED FOR UNKNOWN INDICATION
     Route: 042
     Dates: start: 20110301, end: 20110304
  3. ETOPOSIDE TEVA [Suspect]
     Indication: PRODUCT USED FOR UNKNOWN INDICATION
     Route: 042
     Dates: start: 20110301, end: 20110304
  4. METOCLOPRAMIDE [Suspect]
     Indication: PRODUCT USED FOR UNKNOWN INDICATION
     Route: 042
     Dates: start: 20110305, end: 20110306
  5. MORPHINE [Suspect]
     Indication: PRODUCT USED FOR UNKNOWN INDICATION
     Route: 042
     Dates: start: 20110305, end: 20110306
  6. ARIXTRA [Suspect]
     Indication: PRODUCT USED FOR UNKNOWN INDICATION
     Route: 058
     Dates: start: 20110228, end: 20110306
  7. PIPERACILLIN + TAZOBACTAM [Suspect]
     Indication: PRODUCT USED FOR UNKNOWN INDICATION
     Route: 042
     Dates: start: 20110304, end: 20110306
  8. AMIKACINE [Suspect]
     Indication: PRODUCT USED FOR UNKNOWN INDICATION
     Route: 042
     Dates: start: 20110304, end: 20110305
  9. ACICLOVIR [Suspect]
     Indication: PRODUCT USED FOR UNKNOWN INDICATION
     Route: 042
     Dates: start: 20110305, end: 20110306
  10. ETHYOL [Suspect]
     Indication: PRODUCT USED FOR UNKNOWN INDICATION
     Route: 042
     Dates: start: 20110301, end: 20110304
  11. UROMITEXAN [Suspect]
     Indication: PRODUCT USED FOR UNKNOWN INDICATION
     Dates: start: 20110301, end: 20110304
  12. GENTAMICINE PANPHARMA [Suspect]
     Route: 048
     Dates: start: 20110302, end: 20110306
  13. INEXIUM [Concomitant]
  14. KEPPRA [Concomitant]
  15. LYRICA [Concomitant]
  16. RIVOTRIL [Concomitant]
  17. SOLUPRED [Suspect]

REACTIONS (7)
  - Myocarditis [None]
  - Hypotension [None]
  - Tachycardia [None]
  - Anuria [None]
  - Cardiac tamponade [None]
  - Cardiac arrest [None]
  - Sepsis [None]
